FAERS Safety Report 25801371 (Version 1)
Quarter: 2025Q3

REPORT INFORMATION
  Report Type: Spontaneous
  Country: EU (occurrence: EU)
  Receive Date: 20250915
  Receipt Date: 20250915
  Transmission Date: 20251021
  Serious: Yes (Death, Life-Threatening, Hospitalization, Other)
  Sender: HIKMA
  Company Number: EU-MLMSERVICE-20250828-PI628428-00232-1

PATIENT
  Age: 68 Year
  Sex: Female

DRUGS (6)
  1. METHYLPREDNISOLONE [Suspect]
     Active Substance: METHYLPREDNISOLONE
     Indication: Antisynthetase syndrome
     Dosage: 1 GRAM, QD, BOLUS
     Route: 065
     Dates: start: 202305, end: 202305
  2. METHYLPREDNISOLONE [Suspect]
     Active Substance: METHYLPREDNISOLONE
     Indication: Overlap syndrome
     Route: 065
     Dates: start: 202307
  3. METHYLPREDNISOLONE [Suspect]
     Active Substance: METHYLPREDNISOLONE
     Indication: Sjogren^s syndrome
     Dosage: 20 MILLIGRAM, QD, SUBSEQUENTLY TAPERED TO A DOSAGE OF 20 MG/DAY
     Route: 065
     Dates: start: 202305
  4. MYCOPHENOLATE MOFETIL [Suspect]
     Active Substance: MYCOPHENOLATE MOFETIL
     Indication: Antisynthetase syndrome
     Dosage: 3 GRAM, QD
     Route: 065
     Dates: start: 202305, end: 202307
  5. MYCOPHENOLATE MOFETIL [Suspect]
     Active Substance: MYCOPHENOLATE MOFETIL
     Indication: Sjogren^s syndrome
  6. MYCOPHENOLATE MOFETIL [Suspect]
     Active Substance: MYCOPHENOLATE MOFETIL
     Indication: Overlap syndrome

REACTIONS (9)
  - Septic shock [Recovering/Resolving]
  - Klebsiella infection [Recovering/Resolving]
  - Cytomegalovirus infection [Recovering/Resolving]
  - Stomatitis [Recovering/Resolving]
  - Pneumonia [Recovering/Resolving]
  - Herpes simplex [Recovering/Resolving]
  - Candida infection [Recovering/Resolving]
  - Generalised oedema [Recovering/Resolving]
  - Infection [Fatal]

NARRATIVE: CASE EVENT DATE: 20230101
